FAERS Safety Report 7932013-7 (Version None)
Quarter: 2011Q4

REPORT INFORMATION
  Report Type: 
  Country: None (occurrence: None)
  Receive Date: 20111121
  Receipt Date: 20111110
  Transmission Date: 20120403
  Serious: Yes (Other)
  Sender: FDA-Public Use
  Company Number: US-BAXTER-2008BH000165

PATIENT
  Age: 33 Year
  Sex: Male
  Weight: 113 kg

DRUGS (16)
  1. COREG [Concomitant]
     Indication: PRODUCT USED FOR UNKNOWN INDICATION
     Route: 065
  2. LISINOPRIL [Concomitant]
     Indication: PRODUCT USED FOR UNKNOWN INDICATION
     Route: 065
  3. HEPARIN SODIUM INJECTION [Suspect]
     Indication: ATRIAL FIBRILLATION
     Route: 040
     Dates: start: 20080105, end: 20080105
  4. HEPARIN SODIUM INJECTION [Suspect]
     Route: 040
     Dates: start: 20080105, end: 20080105
  5. MAGNESIUM [Concomitant]
     Indication: PRODUCT USED FOR UNKNOWN INDICATION
     Route: 065
  6. GLUCOPHAGE [Concomitant]
     Indication: PRODUCT USED FOR UNKNOWN INDICATION
     Route: 065
  7. WARFARIN SODIUM [Concomitant]
     Indication: PRODUCT USED FOR UNKNOWN INDICATION
     Route: 065
  8. WARFARIN SODIUM [Concomitant]
     Route: 065
  9. INSULIN [Concomitant]
     Indication: PRODUCT USED FOR UNKNOWN INDICATION
     Route: 065
  10. ACETAMINOPHEN [Concomitant]
     Indication: PRODUCT USED FOR UNKNOWN INDICATION
     Route: 065
  11. HEPARIN SODIUM 5,000 UNITS IN DEXTROSE 5% [Suspect]
     Indication: ATRIAL FIBRILLATION
     Route: 041
     Dates: start: 20080105, end: 20080107
  12. HEPARIN SODIUM INJECTION [Suspect]
     Route: 065
     Dates: start: 20070104
  13. AMBIEN [Concomitant]
     Indication: PRODUCT USED FOR UNKNOWN INDICATION
     Route: 065
     Dates: start: 20050101
  14. HEPARIN SODIUM INJECTION [Suspect]
     Route: 040
     Dates: start: 20080105, end: 20080105
  15. HEPARIN SODIUM INJECTION [Suspect]
     Route: 040
     Dates: start: 20080106, end: 20080106
  16. DULCOLAX [Concomitant]
     Indication: PRODUCT USED FOR UNKNOWN INDICATION
     Route: 065

REACTIONS (7)
  - MALAISE [None]
  - TACHYCARDIA [None]
  - HEADACHE [None]
  - HYPERHIDROSIS [None]
  - VOMITING [None]
  - NAUSEA [None]
  - PAIN [None]
